FAERS Safety Report 7096656-8 (Version None)
Quarter: 2010Q4

REPORT INFORMATION
  Report Type: 
  Country: None (occurrence: None)
  Receive Date: 20101111
  Receipt Date: 20101028
  Transmission Date: 20110411
  Serious: Yes (Other)
  Sender: FDA-Public Use
  Company Number: US-AMGEN-QUU430329

PATIENT

DRUGS (4)
  1. NEULASTA [Suspect]
     Indication: CHEMOTHERAPY
     Dosage: 6 MG, Q3WK
     Route: 058
     Dates: start: 20100210
  2. DOXORUBICIN HYDROCHLORIDE [Concomitant]
     Dosage: UNK UNK, UNK
     Route: 042
     Dates: start: 20100803
  3. BEVACIZUMAB [Concomitant]
     Dosage: UNK UNK, Q3WK
     Route: 042
     Dates: start: 20100803
  4. CISPLATIN [Concomitant]
     Dosage: UNK UNK, Q3WK
     Route: 042
     Dates: start: 20091201

REACTIONS (3)
  - FEBRILE NEUTROPENIA [None]
  - NEUTROPENIA [None]
  - THERAPEUTIC RESPONSE DECREASED [None]
